FAERS Safety Report 16007331 (Version 3)
Quarter: 2019Q2

REPORT INFORMATION
  Report Type: Report from Study
  Country: DE (occurrence: DE)
  Receive Date: 20190226
  Receipt Date: 20190412
  Transmission Date: 20190711
  Serious: Yes (Disabling)
  Sender: FDA-Public Use
  Company Number: DE-MYLANLABS-2019M1016111

PATIENT
  Age: 64 Year
  Sex: Male

DRUGS (7)
  1. PREDNISOLON                        /00016201/ [Concomitant]
     Active Substance: PREDNISOLONE
     Dosage: UNK
  2. FOLIC ACID. [Concomitant]
     Active Substance: FOLIC ACID
     Dosage: UNK
  3. METHOTREXATE. [Suspect]
     Active Substance: METHOTREXATE
     Indication: RHEUMATOID ARTHRITIS
     Dosage: 15 MILLIGRAM, QW
     Route: 065
     Dates: end: 201712
  4. XELJANZ [Concomitant]
     Active Substance: TOFACITINIB CITRATE
     Indication: RHEUMATOID ARTHRITIS
     Dosage: 10 MILLIGRAM, QD
     Route: 065
     Dates: start: 20180222
  5. ENBREL [Suspect]
     Active Substance: ETANERCEPT
     Indication: RHEUMATOID ARTHRITIS
     Dosage: 50 MILLIGRAM
     Route: 065
     Dates: start: 201509, end: 201707
  6. ARCOXIA [Concomitant]
     Active Substance: ETORICOXIB
  7. TOCILIZUMAB. [Suspect]
     Active Substance: TOCILIZUMAB
     Indication: RHEUMATOID ARTHRITIS
     Dosage: 162 MILLIGRAM, QW
     Route: 058
     Dates: start: 201708, end: 201709

REACTIONS (7)
  - Lipids increased [Unknown]
  - Mucosal ulceration [Unknown]
  - Pain in jaw [Unknown]
  - Bronchitis [Unknown]
  - Arthritis bacterial [Recovered/Resolved with Sequelae]
  - Joint stiffness [Unknown]
  - Toothache [Unknown]

NARRATIVE: CASE EVENT DATE: 20170914
